FAERS Safety Report 7621422-1 (Version None)
Quarter: 2011Q3

REPORT INFORMATION
  Report Type: 
  Country: None (occurrence: None)
  Receive Date: 20110719
  Receipt Date: 20110715
  Transmission Date: 20111222
  Serious: Yes (Life-Threatening, Hospitalization)
  Sender: FDA-Public Use
  Company Number: ES-VERTEX PHARMACEUTICALS INC.-AE-2011-000494

PATIENT
  Sex: Female
  Weight: 50.9 kg

DRUGS (9)
  1. COPEGUS [Suspect]
     Indication: HEPATITIS C
     Route: 048
     Dates: start: 20110517, end: 20110714
  2. ZOLMITRIPTAN [Concomitant]
     Indication: HEADACHE
  3. FOLIC ACID [Concomitant]
     Dates: start: 20110712
  4. ENALAPRIL MALEATE [Concomitant]
     Indication: HYPERTENSION
  5. VX-950 [Suspect]
     Indication: HEPATITIS C
     Route: 048
     Dates: start: 20110517, end: 20110714
  6. PREGABALIN [Concomitant]
     Indication: HEADACHE
  7. FERROUS SULFATE TAB [Concomitant]
     Dates: start: 20110712
  8. PEGASYS [Suspect]
     Indication: HEPATITIS C
     Route: 058
     Dates: start: 20110517, end: 20110712
  9. ACETAMINOPHEN [Concomitant]
     Dates: start: 20110517

REACTIONS (3)
  - NEUTROPENIA [None]
  - THROMBOCYTOPENIA [None]
  - ANAEMIA [None]
